FAERS Safety Report 15060721 (Version 2)
Quarter: 2018Q3

REPORT INFORMATION
  Report Type: Spontaneous
  Country: JP (occurrence: JP)
  Receive Date: 20180625
  Receipt Date: 20180801
  Transmission Date: 20181010
  Serious: Yes (Death)
  Sender: FDA-Public Use
  Company Number: JP-ELI_LILLY_AND_COMPANY-JP201806009107AA

PATIENT
  Age: 79 Year
  Sex: Male
  Weight: 64 kg

DRUGS (12)
  1. PACLITAXEL. [Concomitant]
     Active Substance: PACLITAXEL
     Indication: ADENOCARCINOMA GASTRIC
     Dosage: 120 MG, OTHER
     Dates: start: 20180404, end: 20180404
  2. PACLITAXEL. [Concomitant]
     Active Substance: PACLITAXEL
     Dosage: 100 MG, UNK
     Dates: start: 20180420, end: 20180508
  3. FUROSEMIDE. [Concomitant]
     Active Substance: FUROSEMIDE
     Dosage: UNK
  4. TAKECAB [Concomitant]
     Active Substance: VONOPRAZAN FUMURATE
     Indication: PROPHYLAXIS AGAINST GASTROINTESTINAL ULCER
     Dosage: 20 MG, DAILY
     Dates: start: 20170824
  5. URSO [Concomitant]
     Active Substance: URSODIOL
     Dosage: UNK
  6. NAIXAN                             /00256201/ [Concomitant]
     Active Substance: NAPROXEN
     Indication: TUMOUR ASSOCIATED FEVER
     Dosage: 600 MG, DAILY
     Dates: start: 20170822
  7. BUFFERIN A                         /00009201/ [Concomitant]
     Active Substance: ASPIRIN\DIHYDROXYALUMINUM AMINOACETATE ANHYDROUS\MAGNESIUM CARBONATE
     Indication: CARDIAC DISORDER
     Dosage: 81 MG, DAILY
  8. FERROMIA [Concomitant]
     Active Substance: SODIUM FERROUS CITRATE
     Dosage: UNK
  9. MAGMITT [Concomitant]
     Active Substance: MAGNESIUM OXIDE
     Dosage: UNK
  10. CYRAMZA [Suspect]
     Active Substance: RAMUCIRUMAB
     Indication: ADENOCARCINOMA GASTRIC
     Dosage: 540 MG, OTHER
     Route: 041
     Dates: start: 20180404, end: 20180420
  11. TRAMCET [Concomitant]
     Active Substance: ACETAMINOPHEN\TRAMADOL
     Dosage: 3 DF, UNK
     Route: 048
  12. LIVARO [Concomitant]
     Dosage: UNK

REACTIONS (1)
  - Gastric perforation [Fatal]

NARRATIVE: CASE EVENT DATE: 20180511
